FAERS Safety Report 7396980-5 (Version None)
Quarter: 2011Q2

REPORT INFORMATION
  Report Type: 
  Country: None (occurrence: None)
  Receive Date: 20110406
  Receipt Date: 20101020
  Transmission Date: 20111010
  Serious: Yes (Other)
  Sender: FDA-Public Use
  Company Number: US-BAYER-201024859NA

PATIENT
  Sex: Female
  Weight: 120 kg

DRUGS (12)
  1. YAZ [Suspect]
     Indication: CONTRACEPTION
     Dosage: UNK
     Route: 048
     Dates: start: 20070412
  2. UNCODEABLE ^UNCLASSIFIABLE^ [Concomitant]
  3. PERCOCET [Concomitant]
  4. ACETAMINOPHEN [Concomitant]
  5. IBUPROFEN [IBUPROFEN SODIUM] [Concomitant]
     Dosage: UNK UNK, PRN
     Dates: start: 20061101, end: 20090501
  6. AMBIEN [Concomitant]
  7. PHENERGAN [Concomitant]
  8. YASMIN [Suspect]
     Indication: CONTRACEPTION
     Dosage: UNK
     Route: 048
     Dates: start: 20070101
  9. HYDROCODONE BITARTRATE AND ACETAMINOPHEN [Concomitant]
  10. NAPROSYN [Concomitant]
     Dosage: UNK UNK, PRN
  11. VICODIN [Concomitant]
  12. ALBUTEROL [Concomitant]

REACTIONS (8)
  - GALLBLADDER DISORDER [None]
  - CHOLECYSTITIS CHRONIC [None]
  - MENTAL DISORDER [None]
  - NAUSEA [None]
  - CHOLELITHIASIS [None]
  - HYPERBILIRUBINAEMIA [None]
  - JAUNDICE CHOLESTATIC [None]
  - ABDOMINAL PAIN [None]
